FAERS Safety Report 14686672 (Version 1)
Quarter: 2018Q1

REPORT INFORMATION
  Report Type: Spontaneous
  Country: US (occurrence: US)
  Receive Date: 20180327
  Receipt Date: 20180327
  Transmission Date: 20180509
  Serious: No
  Sender: FDA-Public Use
  Company Number: US-TARO-2018TAR00041

PATIENT
  Sex: Female
  Weight: 65.76 kg

DRUGS (7)
  1. METRONIDAZOLE GEL USP, 1% [Suspect]
     Active Substance: METRONIDAZOLE
     Indication: ROSACEA
     Dosage: ^THIN LAYER,^ 1X/DAY IN THE MORNING
     Route: 061
     Dates: end: 2018
  2. METRONIDAZOLE GEL USP, 1% [Suspect]
     Active Substance: METRONIDAZOLE
     Dosage: ^THIN LAYER,^ 1X/DAY IN THE MORNING
     Route: 061
  3. UNSPECIFIED SUPPLEMENTS [Concomitant]
  4. AZATHIOPRINE. [Concomitant]
     Active Substance: AZATHIOPRINE
     Dosage: 125 MG, 1X/DAY
  5. REMICADE [Concomitant]
     Active Substance: INFLIXIMAB
  6. LOSARTAN POTASSIUM. [Concomitant]
     Active Substance: LOSARTAN POTASSIUM
     Dosage: 50 MG, 1X/DAY
  7. TRAZODONE [Concomitant]
     Active Substance: TRAZODONE HYDROCHLORIDE
     Dosage: 100 MG, 1X/DAY AT BEDTIME

REACTIONS (4)
  - Product quality issue [Recovered/Resolved]
  - Malabsorption from application site [Recovered/Resolved]
  - Drug effect decreased [Recovered/Resolved]
  - Product substitution issue [Recovered/Resolved]
